FAERS Safety Report 4955536-1 (Version None)
Quarter: 2006Q1

REPORT INFORMATION
  Report Type: 
  Country: None (occurrence: None)
  Receive Date: 20060131
  Receipt Date: 20050523
  Transmission Date: 20060701
  Serious: Yes (Other)
  Sender: FDA-Public Use
  Company Number: WAES 0505USA02851

PATIENT
  Age: 81 Year
  Sex: Female
  Weight: 58.0604 kg

DRUGS (6)
  1. PRIMAXIN [Suspect]
     Indication: BACTERIAL INFECTION
     Dosage: 500 MG/Q8H/IV
     Route: 042
     Dates: start: 20050513, end: 20050520
  2. LOVENOX [Concomitant]
  3. FLUCONAZOLE [Concomitant]
  4. HYDROCORTISONE [Concomitant]
  5. METOPROLOL [Concomitant]
  6. POTASSIUM CHLORIDE [Concomitant]

REACTIONS (1)
  - GRAND MAL CONVULSION [None]
